FAERS Safety Report 7165496-3 (Version None)
Quarter: 2010Q4

REPORT INFORMATION
  Report Type: 
  Country: None (occurrence: None)
  Receive Date: 20101215
  Receipt Date: 20100623
  Transmission Date: 20110411
  Serious: Yes (Hospitalization)
  Sender: FDA-Public Use
  Company Number: US-AMGEN-KDL381809

PATIENT

DRUGS (6)
  1. ENBREL [Suspect]
     Indication: RHEUMATOID ARTHRITIS
     Dosage: 25 MG, 2 TIMES/WK
     Route: 058
     Dates: start: 20040310
  2. PRENATAL VITAMINS [Concomitant]
     Dosage: UNK UNK, QD
     Route: 048
     Dates: start: 20090612
  3. FOLIC ACID [Concomitant]
     Dosage: 3 MG, QD
     Route: 048
     Dates: start: 20090612, end: 20100405
  4. CALCIUM [Concomitant]
     Dosage: 1800 MG, QD
     Route: 048
     Dates: start: 20090712, end: 20100305
  5. FENUGREEK [Concomitant]
     Dosage: UNK UNK, BID
     Route: 048
     Dates: start: 20100608
  6. NORETHISTERONE [Concomitant]
     Dosage: UNK UNK, QD
     Dates: start: 20100515

REACTIONS (4)
  - ARTHRITIS BACTERIAL [None]
  - IRRITABLE BOWEL SYNDROME [None]
  - RHEUMATOID ARTHRITIS [None]
  - STAPHYLOCOCCAL INFECTION [None]
